FAERS Safety Report 20468319 (Version 2)
Quarter: 2022Q4

REPORT INFORMATION
  Report Type: Spontaneous
  Country: US (occurrence: US)
  Receive Date: 20220214
  Receipt Date: 20221018
  Transmission Date: 20230113
  Serious: Yes (Death, Other)
  Sender: FDA-Public Use
  Company Number: US-BRISTOL-MYERS SQUIBB COMPANY-BMS-2022-019591

PATIENT
  Age: 79 Year
  Sex: Male
  Weight: 68.934 kg

DRUGS (2)
  1. OPDIVO [Suspect]
     Active Substance: NIVOLUMAB
     Indication: Prostate cancer
     Dosage: 240 MILLIGRAM, Q2WK
     Route: 042
     Dates: start: 20211005
  2. TRELSTAR [Concomitant]
     Active Substance: TRIPTORELIN PAMOATE
     Indication: Product used for unknown indication
     Route: 065

REACTIONS (2)
  - Death [Fatal]
  - Intentional product use issue [Unknown]

NARRATIVE: CASE EVENT DATE: 20220105
